FAERS Safety Report 6529611-4 (Version None)
Quarter: 2010Q1

REPORT INFORMATION
  Report Type: 
  Country: None (occurrence: None)
  Receive Date: 20100107
  Receipt Date: 20091207
  Transmission Date: 20100710
  Serious: Yes (Death, Hospitalization, Other)
  Sender: FDA-Public Use
  Company Number: FR-SANOFI-AVENTIS-2009SA011274

PATIENT
  Age: 55 Year

DRUGS (6)
  1. OXALIPLATIN [Suspect]
     Indication: COLON CANCER
     Route: 041
     Dates: start: 20080102, end: 20080102
  2. OXALIPLATIN [Suspect]
     Route: 041
     Dates: start: 20080311, end: 20080311
  3. FLUOROURACIL [Suspect]
     Indication: COLON CANCER
     Route: 042
     Dates: start: 20080102, end: 20080103
  4. FLUOROURACIL [Suspect]
     Route: 042
     Dates: start: 20080311, end: 20080312
  5. FOLINIC ACID [Suspect]
     Indication: COLON CANCER
     Route: 042
     Dates: start: 20080102, end: 20080103
  6. FOLINIC ACID [Suspect]
     Route: 042
     Dates: start: 20080311, end: 20080312

REACTIONS (1)
  - PULMONARY EMBOLISM [None]
